FAERS Safety Report 6257199-4 (Version None)
Quarter: 2009Q3

REPORT INFORMATION
  Report Type: 
  Country: None (occurrence: None)
  Receive Date: 20090706
  Receipt Date: 20090623
  Transmission Date: 20100115
  Serious: Yes (Death)
  Sender: FDA-Public Use
  Company Number: US-ELI_LILLY_AND_COMPANY-US200906004050

PATIENT
  Age: 55 Year
  Sex: Female
  Weight: 181.41 kg

DRUGS (2)
  1. CYMBALTA [Suspect]
     Indication: DRUG USE FOR UNKNOWN INDICATION
  2. LYRICA [Concomitant]

REACTIONS (1)
  - CONVULSION [None]
